FAERS Safety Report 13452475 (Version 1)
Quarter: 2017Q2

REPORT INFORMATION
  Report Type: Spontaneous
  Country: US (occurrence: US)
  Receive Date: 20170418
  Receipt Date: 20170418
  Transmission Date: 20170830
  Serious: No
  Sender: FDA-Public Use
  Company Number: US-TEVA-659641USA

PATIENT
  Age: 83 Year
  Sex: Female
  Weight: 63.56 kg

DRUGS (1)
  1. WARFARIN [Suspect]
     Active Substance: WARFARIN
     Indication: HEART RATE IRREGULAR
     Route: 065
     Dates: start: 20160101

REACTIONS (4)
  - Malaise [Unknown]
  - Blood pressure increased [Unknown]
  - Thinking abnormal [Unknown]
  - Alopecia [Unknown]

NARRATIVE: CASE EVENT DATE: 201603
